FAERS Safety Report 5572420-3 (Version None)
Quarter: 2007Q4

REPORT INFORMATION
  Report Type: 
  Country: None (occurrence: None)
  Receive Date: 20071219
  Receipt Date: 20071205
  Transmission Date: 20080405
  Serious: Yes (Hospitalization)
  Sender: FDA-Public Use
  Company Number: 390001M07NOR

PATIENT
  Age: 44 Year
  Sex: Female

DRUGS (1)
  1. CETROTIDE [Suspect]
     Dosage: 3 MG, OTHER
     Route: 050
     Dates: start: 20071101, end: 20071101

REACTIONS (4)
  - COLD SWEAT [None]
  - DYSACUSIS [None]
  - HEADACHE [None]
  - PARAESTHESIA [None]
